FAERS Safety Report 6385957-4 (Version None)
Quarter: 2009Q4

REPORT INFORMATION
  Report Type: 
  Country: None (occurrence: None)
  Receive Date: 20091002
  Receipt Date: 20090205
  Transmission Date: 20100525
  Serious: No
  Sender: FDA-Public Use
  Company Number: US-ASTRAZENECA-2009UW03341

PATIENT
  Age: 52 Year
  Sex: Female

DRUGS (1)
  1. ARIMIDEX [Suspect]
     Indication: BREAST CANCER
     Route: 048
     Dates: start: 20070101

REACTIONS (6)
  - ABDOMINAL DISTENSION [None]
  - ARTHRITIS [None]
  - INSOMNIA [None]
  - LIBIDO DECREASED [None]
  - VULVOVAGINAL DRYNESS [None]
  - WEIGHT INCREASED [None]
